FAERS Safety Report 4875497-3 (Version None)
Quarter: 2005Q4

REPORT INFORMATION
  Report Type: 
  Country: None (occurrence: None)
  Receive Date: 20051201
  Receipt Date: 20041110
  Transmission Date: 20060501
  Serious: Yes (Other)
  Sender: FDA-Public Use
  Company Number: ENTC2004-0217

PATIENT
  Age: 61 Year
  Sex: Female

DRUGS (2)
  1. STALEVO 150 [Suspect]
     Indication: PARKINSON'S DISEASE
     Dosage: 150 MG/37.5 MG/200 MG TID, ORAL
     Route: 048
     Dates: start: 20040101
  2. ASPIRIN [Concomitant]

REACTIONS (1)
  - MYALGIA [None]
